FAERS Safety Report 6953086-4 (Version None)
Quarter: 2010Q3

REPORT INFORMATION
  Report Type: 
  Country: None (occurrence: None)
  Receive Date: 20100829
  Receipt Date: 20100521
  Transmission Date: 20110219
  Serious: No
  Sender: FDA-Public Use
  Company Number: US-ABBOTT-10P-163-0647586-00

PATIENT
  Sex: Male
  Weight: 145.28 kg

DRUGS (10)
  1. NIASPAN [Suspect]
     Indication: BLOOD CHOLESTEROL INCREASED
     Dates: start: 20080101, end: 20100101
  2. NIASPAN [Suspect]
     Dates: start: 20100101, end: 20100503
  3. NIASPAN [Suspect]
     Dates: start: 20100501, end: 20100501
  4. LISINOPRIL [Concomitant]
     Indication: HYPERTENSION
  5. METFORMIN [Concomitant]
     Indication: DIABETES MELLITUS
  6. TRICOR [Concomitant]
     Indication: BLOOD TRIGLYCERIDES INCREASED
  7. ASPIRIN [Concomitant]
     Indication: FLUSHING
  8. ASPIRIN [Concomitant]
     Indication: PROPHYLAXIS
  9. HUMALOG [Concomitant]
     Indication: DIABETES MELLITUS
  10. LANTUS [Concomitant]
     Indication: DIABETES MELLITUS

REACTIONS (7)
  - CONTUSION [None]
  - ILL-DEFINED DISORDER [None]
  - MUSCLE RUPTURE [None]
  - MUSCLE SPASMS [None]
  - MYALGIA [None]
  - PAIN IN EXTREMITY [None]
  - SENSORY DISTURBANCE [None]
